FAERS Safety Report 8584677 (Version 4)
Quarter: 2012Q4

REPORT INFORMATION
  Report Type: Report from Study
  Country: AR (occurrence: AR)
  Receive Date: 20120529
  Receipt Date: 20121123
  Transmission Date: 20130627
  Serious: Yes (Other)
  Sender: FDA-Public Use
  Company Number: AR-ABBOTT-12P-007-0939833-00

PATIENT
  Age: 64 None
  Sex: Female

DRUGS (6)
  1. HUMIRA [Suspect]
     Indication: RHEUMATOID ARTHRITIS
     Route: 058
     Dates: start: 20070601
  2. LEVOTYROXINA [Concomitant]
     Indication: HYPOTHYROIDISM
  3. AMLODIPINE W/VALSARTAN [Concomitant]
     Indication: BLOOD PRESSURE ABNORMAL
     Dosage: 5/160 mg
  4. OMEPRAZOL [Concomitant]
     Indication: PRODUCT USED FOR UNKNOWN INDICATION
  5. MTX [Concomitant]
     Indication: PRODUCT USED FOR UNKNOWN INDICATION
  6. GLUCOGAM [Concomitant]
     Indication: DIABETES MELLITUS

REACTIONS (3)
  - Tympanic membrane perforation [Not Recovered/Not Resolved]
  - Ear infection [Recovered/Resolved]
  - Ear pain [Unknown]
